FAERS Safety Report 12804299 (Version 1)
Quarter: 2016Q4

REPORT INFORMATION
  Report Type: Spontaneous
  Country: FR (occurrence: FR)
  Receive Date: 20161003
  Receipt Date: 20161003
  Transmission Date: 20170207
  Serious: Yes (Life-Threatening)
  Sender: FDA-Public Use
  Company Number: FR-JNJFOC-20160926872

PATIENT
  Age: 88 Year
  Sex: Female

DRUGS (10)
  1. LEXOMIL [Concomitant]
     Active Substance: BROMAZEPAM
     Route: 065
  2. DOGMATIL [Concomitant]
     Active Substance: SULPIRIDE
     Route: 065
  3. ALLOPURINOL. [Suspect]
     Active Substance: ALLOPURINOL
     Indication: GOUT
     Route: 048
     Dates: end: 20160820
  4. DOLIPRANE [Concomitant]
     Active Substance: ACETAMINOPHEN
     Route: 065
  5. TARDYFERON FOL [Suspect]
     Active Substance: FERROUS SULFATE\FOLIC ACID
     Indication: BLOOD IRON DECREASED
     Route: 048
     Dates: end: 20160821
  6. SECTRAL [Concomitant]
     Active Substance: ACEBUTOLOL HYDROCHLORIDE
     Route: 065
  7. TILDIEM [Suspect]
     Active Substance: DILTIAZEM HYDROCHLORIDE
     Indication: HYPERTENSION
     Route: 048
     Dates: end: 20160821
  8. XARELTO [Suspect]
     Active Substance: RIVAROXABAN
     Indication: THROMBOSIS PROPHYLAXIS
     Route: 048
     Dates: start: 20160813, end: 20160820
  9. MOVICOL [Suspect]
     Active Substance: POLYETHYLENE GLYCOL 3350\POTASSIUM CHLORIDE\SODIUM BICARBONATE\SODIUM CHLORIDE
     Indication: CONSTIPATION
     Route: 048
     Dates: end: 20160821
  10. FLUDEX-SR [Suspect]
     Active Substance: INDAPAMIDE
     Indication: HYPERTENSION
     Route: 048
     Dates: end: 20160821

REACTIONS (7)
  - Dehydration [Recovered/Resolved]
  - Hypophosphataemia [Recovered/Resolved]
  - Metabolic alkalosis [Recovered/Resolved]
  - Hypokalaemia [Recovered/Resolved]
  - Hypochloraemia [Recovering/Resolving]
  - Hyponatraemia [Recovering/Resolving]
  - Blood hyposmosis [Recovering/Resolving]

NARRATIVE: CASE EVENT DATE: 20160821
